FAERS Safety Report 4754224-4 (Version None)
Quarter: 2005Q3

REPORT INFORMATION
  Report Type: 
  Country: None (occurrence: None)
  Receive Date: 20050824
  Receipt Date: 20050817
  Transmission Date: 20060218
  Serious: Yes (Hospitalization, Other)
  Sender: FDA-Public Use
  Company Number: DEWYE916018AUG05

PATIENT
  Age: 47 Year
  Sex: Female

DRUGS (4)
  1. SIROLIMUS, SIROLIMUS, ) [Suspect]
     Indication: PROPHYLAXIS AGAINST TRANSPLANT REJECTION
     Dosage: 2 MG ORAL
     Route: 048
     Dates: start: 20040101
  2. METHYLPREDNISOLONE [Suspect]
     Dosage: 4 MG ORAL
     Route: 048
  3. MYCOPHENOLATE MOFETIL (MYCOPHENOLATE MOFETIL, , 0) [Suspect]
     Dosage: 1000 MG ORAL
     Route: 048
  4. TACROLIMUS (TACROLIMUS, , 0) [Suspect]
     Indication: PROPHYLAXIS AGAINST TRANSPLANT REJECTION
     Dosage: 3 MG ORAL
     Route: 048
     Dates: start: 20040708

REACTIONS (2)
  - BLOOD CREATININE INCREASED [None]
  - KIDNEY TRANSPLANT REJECTION [None]
